FAERS Safety Report 25279903 (Version 1)
Quarter: 2025Q2

REPORT INFORMATION
  Report Type: Spontaneous
  Country: US (occurrence: US)
  Receive Date: 20250507
  Receipt Date: 20250507
  Transmission Date: 20250716
  Serious: Yes (Other)
  Sender: BRISTOL-MYERS SQUIBB COMPANY
  Company Number: US-BRISTOL-MYERS SQUIBB COMPANY-2025-064619

PATIENT
  Age: 84 Year
  Sex: Female

DRUGS (4)
  1. ELIQUIS [Suspect]
     Active Substance: APIXABAN
     Indication: Cerebrovascular accident
  2. ELIQUIS [Suspect]
     Active Substance: APIXABAN
     Indication: Atrial fibrillation
  3. ELIQUIS [Suspect]
     Active Substance: APIXABAN
     Indication: Cardiac flutter
  4. ELIQUIS [Suspect]
     Active Substance: APIXABAN
     Indication: Cardiac disorder

REACTIONS (5)
  - Haemorrhoidal haemorrhage [Unknown]
  - Inability to afford medication [Unknown]
  - Cardiac disorder [Unknown]
  - Pericardial effusion [Unknown]
  - Haemorrhage [Unknown]
